FAERS Safety Report 17169539 (Version 5)
Quarter: 2024Q1

REPORT INFORMATION
  Report Type: Spontaneous
  Country: DE (occurrence: DE)
  Receive Date: 20191218
  Receipt Date: 20240208
  Transmission Date: 20240410
  Serious: Yes (Hospitalization, Other)
  Sender: FDA-Public Use
  Company Number: None

PATIENT
  Age: 80 Year
  Sex: Male

DRUGS (3)
  1. VOLTAREN [Suspect]
     Active Substance: DICLOFENAC SODIUM
     Indication: Product used for unknown indication
     Dosage: 1 DF, PRN
     Route: 065
     Dates: end: 20191007
  2. METOPROLOL [Suspect]
     Active Substance: METOPROLOL
     Indication: Heart rate increased
     Dosage: UNK
     Route: 065
     Dates: end: 201904
  3. METOPROLOL [Suspect]
     Active Substance: METOPROLOL
     Dosage: UNK, PRN (? DOSAGE FORM)
     Route: 065
     Dates: start: 2019, end: 20191007

REACTIONS (3)
  - Presyncope [Recovered/Resolved]
  - Presyncope [Recovered/Resolved]
  - Nausea [Recovered/Resolved]

NARRATIVE: CASE EVENT DATE: 20190501
